FAERS Safety Report 7707387-2 (Version None)
Quarter: 2011Q3

REPORT INFORMATION
  Report Type: 
  Country: None (occurrence: None)
  Receive Date: 20110824
  Receipt Date: 20110816
  Transmission Date: 20111222
  Serious: Yes (Death)
  Sender: FDA-Public Use
  Company Number: US-JNJFOC-20110303466

PATIENT
  Sex: Male
  Weight: 66.23 kg

DRUGS (11)
  1. LIALDA [Concomitant]
  2. PREDNISONE [Concomitant]
  3. STELARA [Suspect]
     Indication: PSORIASIS
     Route: 058
     Dates: start: 20100305
  4. STELARA [Suspect]
     Route: 058
     Dates: start: 20100923
  5. VECTICAL [Concomitant]
  6. STELARA [Suspect]
     Route: 058
     Dates: start: 20100702
  7. LYRICA [Concomitant]
  8. WELLBUTRIN [Concomitant]
  9. STELARA [Suspect]
     Route: 058
     Dates: start: 20101210
  10. STELARA [Suspect]
     Route: 058
     Dates: start: 20100409
  11. NEXIUM [Concomitant]

REACTIONS (1)
  - LUNG DISORDER [None]
